FAERS Safety Report 21855720 (Version 4)
Quarter: 2023Q1

REPORT INFORMATION
  Report Type: Spontaneous
  Country: US (occurrence: US)
  Receive Date: 20230112
  Receipt Date: 20230331
  Transmission Date: 20230418
  Serious: Yes (Other)
  Sender: FDA-Public Use
  Company Number: US-TEVA-2023-US-2843063

PATIENT
  Age: 8 Year
  Sex: Male

DRUGS (5)
  1. CYCLOSPORINE [Suspect]
     Active Substance: CYCLOSPORINE
     Indication: Skin mass
     Route: 065
  2. INSULIN ASPART [Suspect]
     Active Substance: INSULIN ASPART
     Indication: Type 1 diabetes mellitus
     Route: 065
  3. DAPSONE [Suspect]
     Active Substance: DAPSONE
     Indication: Skin mass
     Route: 065
  4. HUMAN IMMUNOGLOBULIN G [Suspect]
     Active Substance: HUMAN IMMUNOGLOBULIN G
     Indication: Skin mass
     Route: 042
  5. GLULISINE [Concomitant]
     Indication: Type 1 diabetes mellitus
     Route: 065

REACTIONS (2)
  - Skin mass [Unknown]
  - Treatment failure [Unknown]
